FAERS Safety Report 4510516-5 (Version None)
Quarter: 2004Q4

REPORT INFORMATION
  Report Type: 
  Country: None (occurrence: None)
  Receive Date: 20041122
  Receipt Date: 20041028
  Transmission Date: 20050328
  Serious: Yes (Other)
  Sender: FDA-Public Use
  Company Number: 2004-121788-NL

PATIENT
  Age: 24 Year
  Sex: Female
  Weight: 66.8 kg

DRUGS (1)
  1. NUVARING [Suspect]
     Dosage: VAGINAL
     Route: 067
     Dates: start: 20020101

REACTIONS (2)
  - MENSTRUATION IRREGULAR [None]
  - PELVIC INFLAMMATORY DISEASE [None]
